FAERS Safety Report 12522255 (Version 2)
Quarter: 2017Q2

REPORT INFORMATION
  Report Type: Spontaneous
  Country: FR (occurrence: FR)
  Receive Date: 20160701
  Receipt Date: 20170508
  Transmission Date: 20170830
  Serious: Yes (Hospitalization)
  Sender: FDA-Public Use
  Company Number: FR-JNJFOC-20160610405

PATIENT
  Age: 35 Year
  Sex: Female
  Weight: 60 kg

DRUGS (16)
  1. REMICADE [Suspect]
     Active Substance: INFLIXIMAB
     Indication: ANKYLOSING SPONDYLITIS
     Route: 042
     Dates: end: 20160606
  2. REMICADE [Suspect]
     Active Substance: INFLIXIMAB
     Indication: ANKYLOSING SPONDYLITIS
     Route: 042
     Dates: start: 20160425
  3. SEROPLEX [Concomitant]
     Active Substance: ESCITALOPRAM OXALATE
     Route: 065
  4. REMICADE [Suspect]
     Active Substance: INFLIXIMAB
     Indication: ANKYLOSING SPONDYLITIS
     Route: 042
     Dates: start: 20041231
  5. METHOTREXATE. [Concomitant]
     Active Substance: METHOTREXATE
     Indication: ANKYLOSING SPONDYLITIS
     Route: 048
     Dates: start: 20160708, end: 20161115
  6. REMICADE [Suspect]
     Active Substance: INFLIXIMAB
     Indication: ANKYLOSING SPONDYLITIS
     Route: 042
     Dates: start: 20160425
  7. METHOTREXATE. [Concomitant]
     Active Substance: METHOTREXATE
     Indication: ANKYLOSING SPONDYLITIS
     Route: 048
     Dates: start: 201305, end: 20160606
  8. BI-PROFENID [Concomitant]
     Active Substance: KETOPROFEN
     Indication: PAIN
     Route: 065
     Dates: start: 2012
  9. APRANAX [Concomitant]
     Active Substance: NAPROXEN
     Route: 048
     Dates: start: 20160708
  10. BI-PROFENID [Concomitant]
     Active Substance: KETOPROFEN
     Indication: ANKYLOSING SPONDYLITIS
     Route: 065
     Dates: start: 2012
  11. APRANAX [Concomitant]
     Active Substance: NAPROXEN
     Route: 048
  12. REMICADE [Suspect]
     Active Substance: INFLIXIMAB
     Indication: ANKYLOSING SPONDYLITIS
     Route: 042
     Dates: start: 201305
  13. REMICADE [Suspect]
     Active Substance: INFLIXIMAB
     Indication: ANKYLOSING SPONDYLITIS
     Route: 042
     Dates: start: 20041231
  14. REMICADE [Suspect]
     Active Substance: INFLIXIMAB
     Indication: ANKYLOSING SPONDYLITIS
     Route: 042
     Dates: end: 20160606
  15. APRANAX [Concomitant]
     Active Substance: NAPROXEN
     Route: 048
     Dates: start: 20160606
  16. REMICADE [Suspect]
     Active Substance: INFLIXIMAB
     Indication: ANKYLOSING SPONDYLITIS
     Route: 042
     Dates: start: 201305

REACTIONS (4)
  - Paraparesis [Recovering/Resolving]
  - Acute polyneuropathy [Recovering/Resolving]
  - Paraesthesia [Recovering/Resolving]
  - Guillain-Barre syndrome [Recovering/Resolving]

NARRATIVE: CASE EVENT DATE: 20160528
